FAERS Safety Report 4834324-0 (Version None)
Quarter: 2005Q4

REPORT INFORMATION
  Report Type: 
  Country: None (occurrence: None)
  Receive Date: 20051122
  Receipt Date: 20050930
  Transmission Date: 20060501
  Serious: Yes (Hospitalization)
  Sender: FDA-Public Use
  Company Number: US-MERCK-0510USA01935

PATIENT
  Age: 57 Year
  Sex: Male
  Weight: 118 kg

DRUGS (15)
  1. VIOXX [Suspect]
     Indication: BACK PAIN
     Route: 048
     Dates: start: 20040119, end: 20040212
  2. LIPITOR [Concomitant]
     Route: 065
  3. CLONIDINE [Concomitant]
     Route: 065
  4. PLAVIX [Concomitant]
     Route: 065
  5. NEORAL [Concomitant]
     Route: 065
  6. LASIX [Concomitant]
     Route: 065
  7. NEURONTIN [Concomitant]
     Route: 065
  8. HUMALOG [Concomitant]
     Route: 065
  9. IMDUR [Concomitant]
     Route: 065
  10. LISINOPRIL [Concomitant]
     Route: 065
  11. METOPROLOL TARTRATE [Concomitant]
     Route: 065
  12. CELLCEPT [Concomitant]
     Route: 065
  13. NOVOLIN N [Concomitant]
     Route: 065
  14. PREDNISONE [Concomitant]
     Route: 065
  15. VITAMIN E [Concomitant]
     Route: 065

REACTIONS (4)
  - FOOT AMPUTATION [None]
  - HEART RATE IRREGULAR [None]
  - MYOCARDIAL INFARCTION [None]
  - POOR PERIPHERAL CIRCULATION [None]
